FAERS Safety Report 15508462 (Version 1)
Quarter: 2018Q4

REPORT INFORMATION
  Report Type: Spontaneous
  Country: IT (occurrence: IT)
  Receive Date: 20181016
  Receipt Date: 20181016
  Transmission Date: 20190205
  Serious: Yes (Hospitalization, Other)
  Sender: FDA-Public Use
  Company Number: IT-UCBSA-2018045027

PATIENT
  Age: 78 Year
  Sex: Male

DRUGS (4)
  1. LEVETIRACETAM. [Suspect]
     Active Substance: LEVETIRACETAM
     Indication: PRODUCT ADMINISTRATION ERROR
     Dosage: 1 DF, TOTAL
     Route: 048
     Dates: start: 20180708, end: 20180708
  2. TOPIRAMATE. [Suspect]
     Active Substance: TOPIRAMATE
     Indication: PRODUCT ADMINISTRATION ERROR
     Dosage: 1 DF, TOTAL
     Route: 048
     Dates: start: 20180708, end: 20180708
  3. TEGRETOL [Suspect]
     Active Substance: CARBAMAZEPINE
     Indication: PRODUCT ADMINISTRATION ERROR
     Dosage: 800 MG, TOTAL
     Route: 048
     Dates: start: 20180708, end: 20180708
  4. LEVETIRACETAM. [Suspect]
     Active Substance: LEVETIRACETAM
     Indication: OFF LABEL USE

REACTIONS (4)
  - Off label use [Unknown]
  - Nervousness [Recovering/Resolving]
  - Headache [Recovering/Resolving]
  - Medication error [Unknown]

NARRATIVE: CASE EVENT DATE: 20180708
